FAERS Safety Report 12241175 (Version 1)
Quarter: 2016Q2

REPORT INFORMATION
  Report Type: Spontaneous
  Country: US (occurrence: None)
  Receive Date: 20160405
  Receipt Date: 20160405
  Transmission Date: 20160815
  Serious: Yes (Other)
  Sender: FDA-Public Use
  Company Number: None

PATIENT
  Age: 47 Year
  Sex: Female
  Weight: 102.06 kg

DRUGS (5)
  1. LYRICA [Concomitant]
     Active Substance: PREGABALIN
  2. SERTRALINE [Concomitant]
     Active Substance: SERTRALINE HYDROCHLORIDE
  3. TYLENOL [Concomitant]
     Active Substance: ACETAMINOPHEN
  4. DEFINITY [Suspect]
     Active Substance: PERFLUTREN
     Indication: ECHOCARDIOGRAM
     Dosage: AS A CONTRAST INTO A VEIN
     Route: 042
     Dates: start: 20160329, end: 20160329
  5. ADVIL [Concomitant]
     Active Substance: IBUPROFEN

REACTIONS (6)
  - Feeling hot [None]
  - Contrast media reaction [None]
  - Body temperature increased [None]
  - Dyspnoea [None]
  - Flushing [None]
  - Chest pain [None]

NARRATIVE: CASE EVENT DATE: 20160329
